FAERS Safety Report 10220917 (Version 1)
Quarter: 2014Q2

REPORT INFORMATION
  Report Type: Spontaneous
  Country: US (occurrence: None)
  Receive Date: 20140605
  Receipt Date: 20140605
  Transmission Date: 20141212
  Serious: Yes (Hospitalization)
  Sender: FDA-Public Use
  Company Number: None

PATIENT
  Age: 57 Year
  Sex: Female
  Weight: 90.72 kg

DRUGS (1)
  1. HYDROCHLOROTHIAZIDE [Suspect]
     Indication: OEDEMA PERIPHERAL
     Dosage: 1 TAB AS NEEDED TAKEN BY MOUTH
     Route: 048

REACTIONS (3)
  - Acute pulmonary oedema [None]
  - Hypotension [None]
  - No reaction on previous exposure to drug [None]
